FAERS Safety Report 16007201 (Version 1)
Quarter: 2019Q1

REPORT INFORMATION
  Report Type: Spontaneous
  Country: FR (occurrence: FR)
  Receive Date: 20190226
  Receipt Date: 20190226
  Transmission Date: 20190418
  Serious: Yes (Hospitalization)
  Sender: FDA-Public Use
  Company Number: FR-MYLANLABS-2019M1016164

PATIENT
  Age: 25 Year
  Sex: Female
  Weight: 74 kg

DRUGS (7)
  1. CICLOSPORIN [Suspect]
     Active Substance: CYCLOSPORINE
     Indication: BONE MARROW FAILURE
     Dosage: 5 MG/KG, UNK
     Route: 042
     Dates: start: 20140812
  2. ATGAM [Suspect]
     Active Substance: EQUINE THYMOCYTE IMMUNE GLOBULIN
     Indication: BONE MARROW FAILURE
     Dosage: 40 MG/KG, DAILY
     Route: 042
     Dates: start: 20140812, end: 20140815
  3. PARACETAMOL [Concomitant]
     Active Substance: ACETAMINOPHEN
     Indication: PREMEDICATION
     Dosage: 1 G, UNK
  4. FILGRASTIM [Suspect]
     Active Substance: FILGRASTIM
     Indication: PRODUCT USED FOR UNKNOWN INDICATION
     Dosage: UNK
     Route: 065
     Dates: end: 20140904
  5. SOLU-MEDROL [Suspect]
     Active Substance: METHYLPREDNISOLONE SODIUM SUCCINATE
     Indication: BONE MARROW FAILURE
     Dosage: 2 MG/KG, DAILY
     Route: 065
     Dates: start: 20140812, end: 20140815
  6. ESOMEPRAZOLE. [Suspect]
     Active Substance: ESOMEPRAZOLE MAGNESIUM
     Indication: PRODUCT USED FOR UNKNOWN INDICATION
     Dosage: 40 MG, FREQ: 2 DAY; INTERVAL: 1
     Route: 065
     Dates: start: 20140801, end: 20140825
  7. POLARAMINE [Concomitant]
     Active Substance: DEXCHLORPHENIRAMINE MALEATE
     Indication: PREMEDICATION
     Dosage: 1 DF, UNK

REACTIONS (12)
  - Pyrexia [Recovered/Resolved]
  - Oral fungal infection [Unknown]
  - Rash maculo-papular [Unknown]
  - Serum sickness [Unknown]
  - Mucosal inflammation [Unknown]
  - Capillary leak syndrome [Recovered/Resolved]
  - Abdominal pain upper [Recovering/Resolving]
  - Pancytopenia [Unknown]
  - Septic shock [Recovered/Resolved]
  - Sepsis [Recovering/Resolving]
  - Steroid diabetes [Unknown]
  - Acute kidney injury [Recovered/Resolved]

NARRATIVE: CASE EVENT DATE: 20140801
